FAERS Safety Report 10956732 (Version 1)
Quarter: 2015Q1

REPORT INFORMATION
  Report Type: Spontaneous
  Country: PL (occurrence: None)
  Receive Date: 20150324
  Receipt Date: 20150324
  Transmission Date: 20150721
  Serious: Yes (Life-Threatening)
  Sender: FDA-Public Use
  Company Number: FK201501299

PATIENT
  Age: 52 Year
  Sex: Male

DRUGS (3)
  1. CLARITHROMYCIN (CLARITHROMYCIN) [Suspect]
     Active Substance: CLARITHROMYCIN
     Indication: ATYPICAL PNEUMONIA
  2. COTRIMOXAZOLE [Suspect]
     Active Substance: SULFAMETHOXAZOLE\TRIMETHOPRIM
     Indication: ANTIBIOTIC THERAPY
  3. AMIODARONE HCL [Suspect]
     Active Substance: AMIODARONE HYDROCHLORIDE
     Indication: VENTRICULAR TACHYCARDIA
     Dosage: NOT OTHERWISE SPECIFIED
     Route: 042

REACTIONS (5)
  - Disease recurrence [None]
  - Drug interaction [None]
  - Cardiac arrest [None]
  - Ventricular arrhythmia [None]
  - Torsade de pointes [None]
